FAERS Safety Report 8224270-7 (Version None)
Quarter: 2012Q1

REPORT INFORMATION
  Report Type: 
  Country: None (occurrence: None)
  Receive Date: 20120321
  Receipt Date: 20120308
  Transmission Date: 20120608
  Serious: Yes (Death)
  Sender: FDA-Public Use
  Company Number: LB-ASTELLAS-2012US002917

PATIENT
  Age: 23 Year
  Sex: Female

DRUGS (6)
  1. AMBISOME [Suspect]
     Indication: ZYGOMYCOSIS
     Dosage: 5 MG/KG, UID/QD
     Route: 042
  2. PIPERACILLIN AND TAZOBACTAM [Concomitant]
     Indication: PNEUMONIA
     Dosage: 4.5 G, Q8 HOURS
     Route: 042
  3. ANTIBIOTICS [Concomitant]
     Indication: PNEUMONIA
     Dosage: UNK
     Route: 065
  4. MEROPENEM [Concomitant]
     Indication: PNEUMONIA
     Dosage: 1 G, Q8 HOURS
     Route: 042
  5. CASPOFUNGIN ACETATE [Concomitant]
     Indication: ZYGOMYCOSIS
     Dosage: UNK
     Route: 065
  6. CHEMOTHERAPEUTICS NOS [Concomitant]
     Indication: ACUTE LYMPHOCYTIC LEUKAEMIA
     Dosage: UNK
     Route: 065

REACTIONS (1)
  - DRUG INEFFECTIVE FOR UNAPPROVED INDICATION [None]
